FAERS Safety Report 17605781 (Version 1)
Quarter: 2020Q1

REPORT INFORMATION
  Report Type: Spontaneous
  Country: US (occurrence: US)
  Receive Date: 20200331
  Receipt Date: 20200331
  Transmission Date: 20200409
  Serious: Yes (Death)
  Sender: FDA-Public Use
  Company Number: None

PATIENT
  Age: 20 Year
  Sex: Female
  Weight: 78.93 kg

DRUGS (2)
  1. MEDROXYPROGESTERONE ACETATE INJECTABLE SUSPENSION [Suspect]
     Active Substance: MEDROXYPROGESTERONE ACETATE
  2. XULANE [Suspect]
     Active Substance: ETHINYL ESTRADIOL\NORELGESTROMIN

REACTIONS (3)
  - Pulmonary embolism [None]
  - Abdominal pain [None]
  - Deep vein thrombosis [None]

NARRATIVE: CASE EVENT DATE: 20200301
